FAERS Safety Report 5338936-X (Version None)
Quarter: 2007Q2

REPORT INFORMATION
  Report Type: 
  Country: None (occurrence: None)
  Receive Date: 20070404
  Receipt Date: 20060207
  Transmission Date: 20071010
  Serious: Yes (Other)
  Sender: FDA-Public Use
  Company Number: HQWYE764913FEB06

PATIENT
  Age: 50 Year
  Sex: Female
  Weight: 61.29 kg

DRUGS (6)
  1. ALAVERT [Suspect]
     Indication: EYE PRURITUS
     Dosage: 1 TABLET DAILY, ORAL
     Route: 048
     Dates: start: 20030101, end: 20060201
  2. ALAVERT [Suspect]
     Indication: LACRIMATION INCREASED
     Dosage: 1 TABLET DAILY, ORAL
     Route: 048
     Dates: start: 20030101, end: 20060201
  3. ALAVERT [Suspect]
     Indication: RHINORRHOEA
     Dosage: 1 TABLET DAILY, ORAL
     Route: 048
     Dates: start: 20030101, end: 20060201
  4. ALAVERT [Suspect]
     Indication: SNEEZING
     Dosage: 1 TABLET DAILY, ORAL
     Route: 048
     Dates: start: 20030101, end: 20060201
  5. BENADRYL [Concomitant]
  6. NUPRIN [Concomitant]

REACTIONS (1)
  - DRUG EFFECT DECREASED [None]
